FAERS Safety Report 8017886-4 (Version None)
Quarter: 2012Q1

REPORT INFORMATION
  Report Type: 
  Country: None (occurrence: None)
  Receive Date: 20120103
  Receipt Date: 20111222
  Transmission Date: 20120608
  Serious: Yes (Other)
  Sender: FDA-Public Use
  Company Number: US-JNJFOC-20111210204

PATIENT
  Sex: Female
  Weight: 59.88 kg

DRUGS (6)
  1. REMICADE [Suspect]
     Indication: RHEUMATOID ARTHRITIS
     Route: 042
     Dates: start: 20110301
  2. ARTHROTEC [Concomitant]
     Indication: RHEUMATOID ARTHRITIS
     Route: 048
     Dates: start: 20070101
  3. WELLBUTRIN [Concomitant]
     Indication: DEPRESSION
     Route: 065
     Dates: start: 20050101
  4. REMICADE [Suspect]
     Indication: CROHN'S DISEASE
     Route: 042
     Dates: start: 20110301
  5. AZULFIDINE [Suspect]
     Indication: RHEUMATOID ARTHRITIS
     Dosage: 200 MG-4 TABLETS
     Route: 048
     Dates: end: 20111101
  6. WELLBUTRIN [Concomitant]
     Indication: VISION BLURRED
     Route: 065
     Dates: start: 20050101

REACTIONS (10)
  - BURNING SENSATION [None]
  - OEDEMA PERIPHERAL [None]
  - CONSTIPATION [None]
  - ARTHROPATHY [None]
  - RHEUMATOID ARTHRITIS [None]
  - NUCHAL RIGIDITY [None]
  - THYROXINE DECREASED [None]
  - JOINT SWELLING [None]
  - BODY HEIGHT DECREASED [None]
  - OSTEOPOROSIS [None]
